FAERS Safety Report 13729577 (Version 1)
Quarter: 2017Q3

REPORT INFORMATION
  Report Type: Report from Study
  Country: US (occurrence: US)
  Receive Date: 20170707
  Receipt Date: 20170707
  Transmission Date: 20171127
  Serious: Yes (Hospitalization, Other)
  Sender: FDA-Public Use
  Company Number: US-GILEAD-2017-0277025

PATIENT
  Age: 73 Year
  Sex: Male
  Weight: 144 kg

DRUGS (21)
  1. PROAIR HFA [Concomitant]
     Active Substance: ALBUTEROL SULFATE
  2. HUMULIN N [Concomitant]
     Active Substance: INSULIN HUMAN
  3. CELLCEPT [Concomitant]
     Active Substance: MYCOPHENOLATE MOFETIL\MYCOPHENOLATE MOFETIL HYDROCHLORIDE
  4. VENTOLIN HFA [Concomitant]
     Active Substance: ALBUTEROL SULFATE
  5. VITAMIN D2 [Concomitant]
     Active Substance: ERGOCALCIFEROL
  6. OXYGEN. [Concomitant]
     Active Substance: OXYGEN
  7. PROTONIX                           /00661201/ [Concomitant]
     Active Substance: OMEPRAZOLE
  8. KLOR-CON [Concomitant]
     Active Substance: POTASSIUM CHLORIDE
  9. PROVENTIL HFA                      /00139501/ [Concomitant]
  10. ASPIRIN EC [Concomitant]
     Active Substance: ASPIRIN
  11. LASIX [Concomitant]
     Active Substance: FUROSEMIDE
  12. ZOCOR [Concomitant]
     Active Substance: SIMVASTATIN
  13. AMBRISENTAN [Suspect]
     Active Substance: AMBRISENTAN
     Indication: PRODUCT USED FOR UNKNOWN INDICATION
     Dosage: 5 MG, UNK
     Route: 065
     Dates: start: 20170425
  14. OMEGA-3 FATTY ACIDS W/VITAMIN E NOS [Concomitant]
  15. ALBUTEROL SULFATE. [Concomitant]
     Active Substance: ALBUTEROL SULFATE
  16. DELTASONE                          /00016001/ [Concomitant]
     Active Substance: DEXAMETHASONE
  17. TADALAFIL [Concomitant]
     Active Substance: TADALAFIL
  18. AMARYL [Concomitant]
     Active Substance: GLIMEPIRIDE
  19. GLUCOSAMINE + CHONDROITIN PLUS     /07238001/ [Concomitant]
  20. MULTIVITAMIN                       /00097801/ [Concomitant]
     Active Substance: VITAMINS
  21. METFORMIN [Concomitant]
     Active Substance: METFORMIN HYDROCHLORIDE

REACTIONS (9)
  - Pulmonary oedema [Recovered/Resolved]
  - Rheumatoid lung [Unknown]
  - Oedema peripheral [Unknown]
  - Fluid retention [Unknown]
  - Weight increased [Unknown]
  - Cor pulmonale [Unknown]
  - Pulmonary hypertension [Unknown]
  - Diastolic dysfunction [Unknown]
  - Interstitial lung disease [Unknown]

NARRATIVE: CASE EVENT DATE: 20170504
